FAERS Safety Report 7229807-2 (Version None)
Quarter: 2011Q1

REPORT INFORMATION
  Report Type: 
  Country: None (occurrence: None)
  Receive Date: 20110117
  Receipt Date: 20110104
  Transmission Date: 20110831
  Serious: Yes (Other)
  Sender: FDA-Public Use
  Company Number: US-ENDO PHARMACEUTICALS INC.-NUBN20110001

PATIENT
  Sex: Female

DRUGS (3)
  1. NUBAIN INJECTION [Suspect]
     Dosage: UNK
     Dates: start: 20101015
  2. DEMEROL [Suspect]
     Dosage: UNK
     Dates: start: 20101015
  3. CAPAXONE [Suspect]
     Indication: MULTIPLE SCLEROSIS
     Dosage: 20 MG
     Route: 058
     Dates: start: 20100912

REACTIONS (2)
  - CONVULSION [None]
  - OBSTRUCTIVE AIRWAYS DISORDER [None]
